FAERS Safety Report 10099334 (Version 2)
Quarter: 2014Q2

REPORT INFORMATION
  Report Type: Spontaneous
  Country: US (occurrence: US)
  Receive Date: 20140423
  Receipt Date: 20140423
  Transmission Date: 20141212
  Serious: No
  Sender: FDA-Public Use
  Company Number: US-GILEAD-2013-0070443

PATIENT
  Age: 59 Year
  Sex: Female

DRUGS (13)
  1. LETAIRIS [Suspect]
     Indication: PULMONARY HYPERTENSION
     Dosage: 5 MG, QD
     Route: 048
     Dates: start: 20121003, end: 20121201
  2. LETAIRIS [Suspect]
     Indication: SYSTEMIC LUPUS ERYTHEMATOSUS
  3. TRAMADOL [Concomitant]
  4. SIMVASTATIN [Concomitant]
  5. SPIRONOLACTONE [Concomitant]
  6. BUMETANIDE [Concomitant]
  7. IMURAN                             /00001501/ [Concomitant]
  8. LOSARTAN [Concomitant]
  9. HYDROXYCHLOROQUINE [Concomitant]
  10. REVATIO [Concomitant]
  11. CARVEDILOL [Concomitant]
  12. LANTUS [Concomitant]
  13. REMODULIN [Concomitant]

REACTIONS (1)
  - Anaemia [Unknown]
